FAERS Safety Report 6425091-8 (Version None)
Quarter: 2009Q4

REPORT INFORMATION
  Report Type: 
  Country: None (occurrence: None)
  Receive Date: 20091102
  Receipt Date: 20091102
  Transmission Date: 20100525
  Serious: Yes (Other)
  Sender: FDA-Public Use
  Company Number: None

PATIENT
  Age: 62 Year
  Sex: Male
  Weight: 78.0187 kg

DRUGS (1)
  1. PROAIR HFA [Suspect]
     Indication: ASTHMA
     Dosage: 1 OR 2 PUFFS 3 TIMES A DAY INHAL MONTH
     Route: 055
     Dates: start: 20090907, end: 20091030

REACTIONS (5)
  - HEADACHE [None]
  - NERVOUSNESS [None]
  - NO THERAPEUTIC RESPONSE [None]
  - PRODUCT SUBSTITUTION ISSUE [None]
  - TREMOR [None]
